FAERS Safety Report 21199083 (Version 1)
Quarter: 2022Q3

REPORT INFORMATION
  Report Type: Spontaneous
  Country: US (occurrence: None)
  Receive Date: 20220811
  Receipt Date: 20220811
  Transmission Date: 20221026
  Serious: Yes (Other)
  Sender: FDA-Public Use
  Company Number: US-ROCHE-3143677

PATIENT
  Age: 49 Year
  Sex: Female
  Weight: 91.254 kg

DRUGS (9)
  1. KADCYLA [Suspect]
     Active Substance: ADO-TRASTUZUMAB EMTANSINE
     Indication: Breast cancer
     Route: 042
     Dates: start: 20220203, end: 20220616
  2. PERJETA [Suspect]
     Active Substance: PERTUZUMAB
     Indication: Product used for unknown indication
     Route: 042
     Dates: start: 202201
  3. DULOXETINE [Concomitant]
     Active Substance: DULOXETINE
     Indication: Neuropathy peripheral
     Route: 048
     Dates: start: 20210706
  4. EXEMESTANE [Concomitant]
     Active Substance: EXEMESTANE
     Route: 048
  5. GARLIC [Concomitant]
     Active Substance: GARLIC
     Route: 048
  6. LYSINE [Concomitant]
     Active Substance: LYSINE
     Route: 048
  7. OMEPRAZOLE [Concomitant]
     Active Substance: OMEPRAZOLE
     Route: 048
  8. VITAMIN C [Concomitant]
     Active Substance: ASCORBIC ACID
     Route: 048
  9. ZINC [Concomitant]
     Active Substance: ZINC
     Route: 048

REACTIONS (3)
  - Drug intolerance [Unknown]
  - Peripheral sensory neuropathy [Recovering/Resolving]
  - Neuralgia [Recovering/Resolving]

NARRATIVE: CASE EVENT DATE: 20220617
